FAERS Safety Report 8235401-7 (Version None)
Quarter: 2012Q1

REPORT INFORMATION
  Report Type: 
  Country: None (occurrence: None)
  Receive Date: 20120326
  Receipt Date: 20120321
  Transmission Date: 20120608
  Serious: Yes (Hospitalization, Other)
  Sender: FDA-Public Use
  Company Number: NO-PFIZER INC-2012017138

PATIENT
  Age: 66 Year
  Sex: Male

DRUGS (13)
  1. ZOPICLONE [Concomitant]
     Indication: INSOMNIA
     Dosage: 5-7,5 MG/DAY
     Dates: start: 20111001
  2. BUPIVACAINE HCL [Concomitant]
     Dosage: CONTINOUS EPIDURAL BUPIVACAINE OR ROPIVACAINE IN LOW/MODERATE DOSES
     Route: 008
     Dates: start: 20111001
  3. CODEINE [Concomitant]
     Dosage: UP TO 180 MG CODEINE/DAY (GIVEN AS A COMBINATION PREPARATION WITH ACETHAMINOPHEN).
     Dates: start: 20111024, end: 20111030
  4. PANTOPRAZOLE [Suspect]
     Indication: PROPHYLAXIS AGAINST GASTROINTESTINAL ULCER
     Dosage: 40 MG, 1X/DAY
     Route: 065
     Dates: start: 20101001
  5. HALOPERIDOL [Concomitant]
     Dosage: 1 MG, 1X/DAY IN THE EVENING
     Dates: start: 20111101, end: 20111114
  6. ACETAMINOPHEN [Suspect]
     Indication: ANALGESIC THERAPY
     Dosage: UP TO 5 GRAM/DAY THE FIRST FEW DAYS, THEN 3-4 GRAM/DAY.
     Dates: start: 20111023, end: 20111114
  7. OXYCODONE HCL [Concomitant]
     Dosage: UP TO 50 MG/DAY
  8. ARTHROTEC [Suspect]
     Indication: ANALGESIC THERAPY
     Dosage: UP TO 100-150 MG DICLOFENAC/DAY
     Dates: start: 20111111, end: 20110101
  9. MUCOMYST [Concomitant]
     Indication: SALIVARY HYPERSECRETION
     Dosage: 200 MG, 3X/DAY
     Route: 048
     Dates: start: 20110101
  10. ROPIVACAINE HYDROCHLORIDE [Concomitant]
     Dosage: LOW/MODERATE DOSES
     Route: 008
     Dates: start: 20111001
  11. ACETAMINOPHEN [Suspect]
     Dosage: 3-4 GM DAILY
     Dates: start: 20111023, end: 20111114
  12. OXAZEPAM [Concomitant]
     Indication: INSOMNIA
     Dosage: 25 MG, 1X/DAY ZOPICLONE OR OXAZEPAM IN THE EVENING
     Dates: start: 20111001
  13. LACTULOSE [Concomitant]
     Dosage: 15 MG, 2X/DAY

REACTIONS (1)
  - CHOLESTASIS [None]
